FAERS Safety Report 12366669 (Version 3)
Quarter: 2016Q3

REPORT INFORMATION
  Report Type: Report from Study
  Country: RU (occurrence: RU)
  Receive Date: 20160513
  Receipt Date: 20160719
  Transmission Date: 20161109
  Serious: Yes (Other)
  Sender: FDA-Public Use
  Company Number: RU-AMGEN-RUSNI2016028491

PATIENT
  Age: 52 Year

DRUGS (13)
  1. BLINATUMOMAB [Suspect]
     Active Substance: BLINATUMOMAB
     Indication: ACUTE LYMPHOCYTIC LEUKAEMIA
     Dosage: 28.5 MUG, QD
     Route: 042
     Dates: start: 20160220
  2. GLIVEC [Concomitant]
     Active Substance: IMATINIB MESYLATE
     Dosage: 600 MG, UNK
     Route: 048
     Dates: start: 20120209
  3. CYTOSAR [Concomitant]
     Active Substance: CYTARABINE
     Dosage: 3600 MG, UNK
     Route: 042
     Dates: start: 20150101
  4. IMIPENEM [Concomitant]
     Active Substance: IMIPENEM
     Dosage: UNK
  5. CYCLOPHOSPHAMIDE. [Concomitant]
     Active Substance: CYCLOPHOSPHAMIDE
     Dosage: 300 MG, BID
     Route: 042
     Dates: start: 20120410
  6. ZAVEDOS [Concomitant]
     Active Substance: IDARUBICIN
     Dosage: 15 MG, UNK
     Route: 042
  7. METHOTREXATE. [Concomitant]
     Active Substance: METHOTREXATE
     Dosage: 12 MG TO 15 MG, UNK
     Dates: start: 20120301
  8. METHYLPREDNISOLON [Concomitant]
     Active Substance: METHYLPREDNISOLONE
     Dosage: 4 MG TO 8MG, UNK
     Dates: start: 20151219
  9. VINCRISTINE [Concomitant]
     Active Substance: VINCRISTINE
     Dosage: 2 MG, UNK
     Route: 042
     Dates: start: 20120410
  10. DASATINIB [Concomitant]
     Active Substance: DASATINIB
     Dosage: 100 MG, UNK
     Route: 048
     Dates: start: 20151229
  11. FLUGARDA [Concomitant]
     Dosage: 50 MG, UNK
     Route: 042
     Dates: start: 20150101
  12. PREDNISOLONE. [Concomitant]
     Active Substance: PREDNISOLONE
     Dosage: 10 TO 30 MG, UNK
     Dates: start: 20151221
  13. ADRIAMYCIN [Concomitant]
     Active Substance: DOXORUBICIN HYDROCHLORIDE
     Dosage: 50 MG, UNK
     Route: 042
     Dates: start: 201204

REACTIONS (5)
  - Aspartate aminotransferase increased [Recovered/Resolved]
  - Pyrexia [Recovered/Resolved]
  - Alanine aminotransferase increased [Recovered/Resolved]
  - Confusional state [Unknown]
  - Toxic encephalopathy [Recovered/Resolved]

NARRATIVE: CASE EVENT DATE: 20160220
